FAERS Safety Report 7927356-7 (Version None)
Quarter: 2011Q4

REPORT INFORMATION
  Report Type: 
  Country: None (occurrence: None)
  Receive Date: 20111118
  Receipt Date: 20111111
  Transmission Date: 20120403
  Serious: Yes (Other)
  Sender: FDA-Public Use
  Company Number: PHHY2011MX21902

PATIENT
  Sex: Female

DRUGS (5)
  1. ZOLEDRONOC ACID [Suspect]
     Indication: OSTEOPOROSIS
     Dosage: 5 MG, UNK (PER YEAR)
     Route: 042
     Dates: start: 20110310
  2. DOLOCARTIGEN [Concomitant]
     Dosage: UNK UKN, UNK
     Dates: start: 20110401
  3. FABROBEL [Concomitant]
     Dosage: UNK UKN, UNK
  4. LEVOTHYROXINE SODIUM [Concomitant]
     Dosage: UNK UKN, UNK
  5. ARCOXIA [Concomitant]
     Dosage: UNK UKN, UNK
     Dates: start: 20111001

REACTIONS (3)
  - DYSPNOEA [None]
  - PAIN [None]
  - CHEST PAIN [None]
